FAERS Safety Report 4338364-X (Version None)
Quarter: 2004Q2

REPORT INFORMATION
  Report Type: 
  Country: None (occurrence: None)
  Receive Date: 20040414
  Receipt Date: 20040408
  Transmission Date: 20050107
  Serious: Yes (Other)
  Sender: FDA-Public Use
  Company Number: 200412757US

PATIENT
  Sex: Male

DRUGS (1)
  1. DDAVP [Suspect]
     Indication: DIABETES INSIPIDUS
     Route: 048

REACTIONS (2)
  - BRAIN NEOPLASM [None]
  - DIARRHOEA [None]
